FAERS Safety Report 4450796-8 (Version None)
Quarter: 2004Q3

REPORT INFORMATION
  Report Type: 
  Country: None (occurrence: None)
  Receive Date: 20040913
  Receipt Date: 20040513
  Transmission Date: 20050211
  Serious: No
  Sender: FDA-Public Use
  Company Number: 2004-BP-03751BP(0)

PATIENT
  Age: 65 Year
  Sex: Male

DRUGS (11)
  1. SPIRIVA [Suspect]
     Indication: CHRONIC OBSTRUCTIVE AIRWAYS DISEASE
     Dosage: 18 MCG (18 MCG), IH
     Dates: start: 20040507, end: 20040512
  2. FORADIL [Concomitant]
  3. PREDNISONE [Concomitant]
  4. PRINIVIL [Concomitant]
  5. PEPCID [Concomitant]
  6. ACTIFED [Concomitant]
  7. OXYGEN (OXYGEN) [Concomitant]
  8. PROVENTIL (SALBUTAMOL SULFATE) [Concomitant]
  9. ATROVENT [Concomitant]
  10. PULMICORT [Concomitant]
  11. SINGULAIR [Concomitant]

REACTIONS (3)
  - CHEST PAIN [None]
  - PULMONARY FUNCTION TEST DECREASED [None]
  - RESPIRATORY RATE INCREASED [None]
